FAERS Safety Report 21563242 (Version 1)
Quarter: 2022Q4

REPORT INFORMATION
  Report Type: Spontaneous
  Country: US (occurrence: None)
  Receive Date: 20221107
  Receipt Date: 20221107
  Transmission Date: 20230113
  Serious: No
  Sender: FDA-Public Use
  Company Number: None

PATIENT
  Age: 61 Year
  Sex: Female

DRUGS (1)
  1. TALTZ [Suspect]
     Active Substance: IXEKIZUMAB
     Indication: Psoriasis
     Dosage: 80MG EVERY 4 WEEKS SUBCUTANEOUS?
     Route: 058
     Dates: start: 202004

REACTIONS (4)
  - Device defective [None]
  - Device malfunction [None]
  - Injection site discharge [None]
  - Product dose omission issue [None]

NARRATIVE: CASE EVENT DATE: 20221103
